FAERS Safety Report 9609729 (Version 1)
Quarter: 2013Q4

REPORT INFORMATION
  Report Type: Spontaneous
  Country: US (occurrence: US)
  Receive Date: 20131009
  Receipt Date: 20131009
  Transmission Date: 20140711
  Serious: No
  Sender: FDA-Public Use
  Company Number: US-PURDUE-USA-2012-0095755

PATIENT
  Age: 66 Year
  Sex: Male

DRUGS (1)
  1. BUTRANS [Suspect]
     Indication: SPINAL COLUMN INJURY
     Dosage: 5 MCG, WEEKLY
     Route: 062
     Dates: start: 201209, end: 20121109

REACTIONS (5)
  - Vertigo [Recovering/Resolving]
  - Dizziness [Recovering/Resolving]
  - Application site vesicles [Unknown]
  - Application site pain [Unknown]
  - Application site erythema [Unknown]
